FAERS Safety Report 6805200-9 (Version None)
Quarter: 2010Q2

REPORT INFORMATION
  Report Type: 
  Country: None (occurrence: None)
  Receive Date: 20100628
  Receipt Date: 20071006
  Transmission Date: 20101027
  Serious: No
  Sender: FDA-Public Use
  Company Number: US-PFIZER INC-2007068893

PATIENT
  Sex: Female
  Weight: 70.5 kg

DRUGS (11)
  1. GEODON [Suspect]
     Indication: HALLUCINATION, AUDITORY
     Route: 048
     Dates: start: 20070716, end: 20070829
  2. GEODON [Interacting]
     Indication: MOOD ALTERED
  3. NORCO [Interacting]
     Indication: PAIN
     Route: 048
  4. NEURONTIN [Concomitant]
  5. FLEXOCUTAN [Concomitant]
  6. TRAMADOL HYDROCHLORIDE [Concomitant]
  7. TRAMADOL HYDROCHLORIDE [Concomitant]
  8. TRICOR [Concomitant]
  9. LIPITOR [Concomitant]
  10. WARFARIN [Concomitant]
  11. ATIVAN [Concomitant]
     Indication: ANXIETY
     Route: 048

REACTIONS (5)
  - CRYING [None]
  - DRUG INTERACTION [None]
  - DRUG TOLERANCE [None]
  - HOT FLUSH [None]
  - INSOMNIA [None]
